FAERS Safety Report 8024478-X (Version None)
Quarter: 2012Q1

REPORT INFORMATION
  Report Type: 
  Country: None (occurrence: None)
  Receive Date: 20120103
  Receipt Date: 20111221
  Transmission Date: 20120608
  Serious: Yes (Hospitalization)
  Sender: FDA-Public Use
  Company Number: UTC-012009

PATIENT
  Age: 69 Year
  Sex: Female
  Weight: 65.9 kg

DRUGS (7)
  1. LETAIRIS [Concomitant]
  2. CELLCEPT [Concomitant]
  3. LANOXIN [Concomitant]
  4. REVATIO [Concomitant]
  5. DIURETICS (DIURETICS) [Concomitant]
  6. REMODULIN [Suspect]
     Indication: COR PULMONALE CHRONIC
     Dosage: 84.96 UG/KG (0.59 UG/KG, 1 IN 1 MIN), INTRAVENOUS
     Route: 042
     Dates: start: 20110713
  7. OXYGEN (OXYGEN) [Concomitant]

REACTIONS (3)
  - SYNCOPE [None]
  - CYANOSIS [None]
  - INCORRECT DOSE ADMINISTERED [None]
